FAERS Safety Report 12117444 (Version 1)
Quarter: 2016Q1

REPORT INFORMATION
  Report Type: Report from Study
  Country: US (occurrence: US)
  Receive Date: 20160225
  Receipt Date: 20160225
  Transmission Date: 20160526
  Serious: Yes (Other)
  Sender: FDA-Public Use
  Company Number: US-AMGEN-USASL2016022292

PATIENT
  Age: 82 Year
  Sex: Female

DRUGS (1)
  1. KYPROLIS [Suspect]
     Active Substance: CARFILZOMIB
     Indication: PRODUCT USED FOR UNKNOWN INDICATION
     Dosage: UNK
     Route: 065

REACTIONS (8)
  - Joint swelling [Unknown]
  - Inappropriate schedule of drug administration [Unknown]
  - Renal impairment [Unknown]
  - Foot deformity [Unknown]
  - Neuropathy peripheral [Unknown]
  - Neoplasm malignant [Unknown]
  - Varicose vein [Unknown]
  - Anaemia [Unknown]
